FAERS Safety Report 6971319-5 (Version None)
Quarter: 2010Q3

REPORT INFORMATION
  Report Type: 
  Country: None (occurrence: None)
  Receive Date: 20100908
  Receipt Date: 20100825
  Transmission Date: 20110219
  Serious: Yes (Other)
  Sender: FDA-Public Use
  Company Number: PHFR2010GB02075

PATIENT
  Sex: Female

DRUGS (5)
  1. CLOZARIL [Suspect]
     Indication: SCHIZOPHRENIA
     Dosage: 600 MG/DAY
     Route: 048
     Dates: start: 20050207
  2. AMISULPRIDE [Suspect]
     Indication: SCHIZOPHRENIA
     Dosage: 200 MG
  3. LAMOTRIGINE [Suspect]
     Indication: SCHIZOPHRENIA
     Dosage: 50MG, UNK
  4. PAROXETINE HCL [Suspect]
     Indication: DEPRESSION
     Dosage: 30 MG, UNK
  5. RAMIPRIL [Suspect]
     Indication: BLOOD PRESSURE
     Dosage: 20 MG, UNK

REACTIONS (2)
  - BREAST ABSCESS [None]
  - BREAST CANCER [None]
